FAERS Safety Report 23427878 (Version 2)
Quarter: 2024Q1

REPORT INFORMATION
  Report Type: Other
  Country: IR (occurrence: None)
  Receive Date: 20240122
  Receipt Date: 20240219
  Transmission Date: 20240410
  Serious: No
  Sender: FDA-Public Use
  Company Number: IR-ROCHE-3494571

PATIENT

DRUGS (3)
  1. RIBAVIRIN [Suspect]
     Active Substance: RIBAVIRIN
     Indication: Congo-Crimean haemorrhagic fever
     Dosage: SINGLE DOSE
     Route: 065
  2. RIBAVIRIN [Suspect]
     Active Substance: RIBAVIRIN
     Dosage: FOR 4 DAYS
     Route: 065
  3. RIBAVIRIN [Suspect]
     Active Substance: RIBAVIRIN
     Dosage: FOR 6 DAYS
     Route: 065

REACTIONS (1)
  - Maternal exposure timing unspecified [Unknown]
